FAERS Safety Report 4269167-2 (Version None)
Quarter: 2004Q1

REPORT INFORMATION
  Report Type: 
  Country: None (occurrence: None)
  Receive Date: 20040109
  Receipt Date: 20031224
  Transmission Date: 20041129
  Serious: Yes (Hospitalization)
  Sender: FDA-Public Use
  Company Number: DSA_23733_2003

PATIENT
  Age: 65 Year
  Sex: Female

DRUGS (3)
  1. LORAZEPAM [Suspect]
     Dates: start: 20031206, end: 20031206
  2. BARBITURATES [Suspect]
     Dates: start: 20031206, end: 20031206
  3. ALCOHOL [Suspect]
     Dates: start: 20031206, end: 20031206

REACTIONS (4)
  - ALCOHOL USE [None]
  - INTENTIONAL OVERDOSE [None]
  - MULTIPLE DRUG OVERDOSE [None]
  - MYDRIASIS [None]
